FAERS Safety Report 7554876-X (Version None)
Quarter: 2011Q2

REPORT INFORMATION
  Report Type: 
  Country: None (occurrence: None)
  Receive Date: 20110615
  Receipt Date: 20110615
  Transmission Date: 20111010
  Serious: No
  Sender: FDA-Public Use
  Company Number: None

PATIENT
  Sex: Female
  Weight: 105 kg

DRUGS (2)
  1. ETOPOSIDE [Suspect]
     Dosage: 684 MG
  2. CISPLATIN [Suspect]
     Dosage: 120 MG

REACTIONS (1)
  - PLATELET COUNT DECREASED [None]
